FAERS Safety Report 6678115-7 (Version None)
Quarter: 2010Q2

REPORT INFORMATION
  Report Type: 
  Country: None (occurrence: None)
  Receive Date: 20100409
  Receipt Date: 20100409
  Transmission Date: 20101027
  Serious: Yes (Hospitalization)
  Sender: FDA-Public Use
  Company Number: None

PATIENT
  Sex: Male
  Weight: 81.81 kg

DRUGS (5)
  1. MEMANTINE HCL [Suspect]
     Dosage: 560 MG
  2. COMBIVENT [Concomitant]
  3. ECOTRIN [Concomitant]
  4. PERCOCET [Concomitant]
  5. FLUTICASONE PROPIONATE [Concomitant]

REACTIONS (4)
  - ACUTE CORONARY SYNDROME [None]
  - CHEST DISCOMFORT [None]
  - CHEST PAIN [None]
  - NAUSEA [None]
